FAERS Safety Report 18909044 (Version 1)
Quarter: 2021Q1

REPORT INFORMATION
  Report Type: Spontaneous
  Country: US (occurrence: US)
  Receive Date: 20210218
  Receipt Date: 20210218
  Transmission Date: 20210420
  Serious: No
  Sender: FDA-Public Use
  Company Number: US-TEVA-2021-US-1880011

PATIENT
  Sex: Female

DRUGS (1)
  1. JUNEL 1/20 [Suspect]
     Active Substance: ETHINYL ESTRADIOL\NORETHINDRONE ACETATE
     Dosage: START DATE: APPROXIMATELY 4 YEARS, FREQUENCY: 21 DAYS
     Route: 065

REACTIONS (2)
  - Metrorrhagia [Unknown]
  - Product quality issue [Unknown]
